FAERS Safety Report 6701723-1 (Version None)
Quarter: 2010Q2

REPORT INFORMATION
  Report Type: 
  Country: None (occurrence: None)
  Receive Date: 20100429
  Receipt Date: 20100419
  Transmission Date: 20101027
  Serious: Yes (Other)
  Sender: FDA-Public Use
  Company Number: PHHY2010US07088

PATIENT
  Sex: Female

DRUGS (2)
  1. EXJADE [Suspect]
     Indication: SICKLE CELL ANAEMIA
     Dosage: 500 MG, QD
     Route: 048
     Dates: start: 20071115
  2. EXJADE [Suspect]
     Dosage: 500 MG, QD
     Route: 048
     Dates: start: 20100204

REACTIONS (9)
  - BONE MARROW DISORDER [None]
  - COUGH [None]
  - DIZZINESS [None]
  - FALL [None]
  - HEADACHE [None]
  - OROPHARYNGEAL PAIN [None]
  - SOMNOLENCE [None]
  - VISION BLURRED [None]
  - VOMITING [None]
